FAERS Safety Report 6377994-0 (Version None)
Quarter: 2009Q3

REPORT INFORMATION
  Report Type: 
  Country: None (occurrence: None)
  Receive Date: 20090925
  Receipt Date: 20090923
  Transmission Date: 20100115
  Serious: Yes (Death, Hospitalization)
  Sender: FDA-Public Use
  Company Number: PHHO2009US11704

PATIENT
  Sex: Male
  Weight: 114 kg

DRUGS (6)
  1. STI571/CGP57148B T35717+TAB [Suspect]
     Indication: NON-SMALL CELL LUNG CANCER
     Dosage: 500 MG, UNK
     Route: 048
     Dates: start: 20090707
  2. PACLITAXEL [Suspect]
     Indication: NON-SMALL CELL LUNG CANCER
     Dosage: UNK
     Dates: start: 20090707
  3. ATENOLOL [Concomitant]
     Indication: HYPERTENSION
     Dosage: UNK
  4. SYNTHROID [Concomitant]
     Indication: HYPOTHYROIDISM
     Dosage: UNK
  5. METFORMIN HCL [Concomitant]
     Indication: DIABETES MELLITUS
     Dosage: UNK
  6. LOVASTATIN [Concomitant]
     Indication: HYPERTENSION
     Dosage: UNK

REACTIONS (10)
  - ATRIAL FIBRILLATION [None]
  - DYSPNOEA [None]
  - ENDOTRACHEAL INTUBATION [None]
  - HYPOXIA [None]
  - OXYGEN SATURATION DECREASED [None]
  - PNEUMONITIS [None]
  - PYREXIA [None]
  - RESPIRATORY DISTRESS [None]
  - STAPHYLOCOCCAL INFECTION [None]
  - WEANING FAILURE [None]
